FAERS Safety Report 8130276-9 (Version None)
Quarter: 2012Q1

REPORT INFORMATION
  Report Type: 
  Country: None (occurrence: None)
  Receive Date: 20120210
  Receipt Date: 20120203
  Transmission Date: 20120608
  Serious: Yes (Hospitalization, Other)
  Sender: FDA-Public Use
  Company Number: PHHY2012JP006956

PATIENT
  Age: 63 Year
  Sex: Female

DRUGS (1)
  1. LETROZOLE [Suspect]

REACTIONS (7)
  - LYMPHOCYTE COUNT INCREASED [None]
  - NEUTROPHIL COUNT INCREASED [None]
  - INFECTION [None]
  - ORGANISING PNEUMONIA [None]
  - LUNG INFILTRATION [None]
  - COUGH [None]
  - PYREXIA [None]
